FAERS Safety Report 12119865 (Version 1)
Quarter: 2016Q1

REPORT INFORMATION
  Report Type: Spontaneous
  Country: None (occurrence: GB)
  Receive Date: 20160226
  Receipt Date: 20160226
  Transmission Date: 20160526
  Serious: Yes (Other)
  Sender: FDA-Public Use
  Company Number: GB-MEDAC PHARMA, INC.-1048414

PATIENT
  Age: 8 Decade
  Sex: Female

DRUGS (2)
  1. SIMPONI [Suspect]
     Active Substance: GOLIMUMAB
     Route: 058
     Dates: start: 20150908, end: 20160126
  2. METHOTREXATE [Suspect]
     Active Substance: METHOTREXATE
     Indication: PRODUCT USED FOR UNKNOWN INDICATION
     Route: 065
     Dates: start: 20151119

REACTIONS (3)
  - Herpes zoster [Recovering/Resolving]
  - Neutropenia [Unknown]
  - Surgery [Recovering/Resolving]

NARRATIVE: CASE EVENT DATE: 2015
